FAERS Safety Report 9772967 (Version 2)
Quarter: 2014Q1

REPORT INFORMATION
  Report Type: Spontaneous
  Country: US (occurrence: US)
  Receive Date: 20131219
  Receipt Date: 20140110
  Transmission Date: 20141002
  Serious: Yes (Other)
  Sender: FDA-Public Use
  Company Number: US-BAYER-2013-152979

PATIENT
  Age: 19 Year
  Sex: Female

DRUGS (1)
  1. MIRENA [Suspect]
     Indication: CONTRACEPTION
     Dosage: 20 MCG/24HR, CONT
     Route: 015
     Dates: start: 20121105

REACTIONS (5)
  - Cyst [None]
  - Vaginal discharge [None]
  - Lymphadenopathy [None]
  - Urinary tract infection [Recovered/Resolved]
  - Vaginal infection [Not Recovered/Not Resolved]
